FAERS Safety Report 6835361-7 (Version None)
Quarter: 2010Q3

REPORT INFORMATION
  Report Type: 
  Country: None (occurrence: None)
  Receive Date: 20100707
  Receipt Date: 20100611
  Transmission Date: 20110219
  Serious: Yes (Other)
  Sender: FDA-Public Use
  Company Number: AUR-APL-2010-01333

PATIENT
  Age: 20 Month
  Sex: Male
  Weight: 14.0615 kg

DRUGS (4)
  1. AMOXICILLIN [Suspect]
     Indication: EAR INFECTION
     Dosage: 0.875ML, ORAL
     Route: 048
     Dates: start: 20100429
  2. CHILDREN'S MOTRIN [Suspect]
     Indication: EAR INFECTION
     Dosage: 0.875ML, ORAL; 1.25 ML, ORAL
     Route: 048
     Dates: end: 20100501
  3. CHILDREN'S MOTRIN [Suspect]
     Indication: PYREXIA
     Dosage: 0.875ML, ORAL; 1.25 ML, ORAL
     Route: 048
     Dates: end: 20100501
  4. CONCENTRATED TYLENOL INFANT DROPS [Suspect]
     Dosage: 0.8ML, ORAL; 0.4ML, ORAL
     Route: 048

REACTIONS (3)
  - LIVER INJURY [None]
  - PRODUCT QUALITY ISSUE [None]
  - SKIN DISCOLOURATION [None]
